FAERS Safety Report 24802058 (Version 3)
Quarter: 2025Q1

REPORT INFORMATION
  Report Type: Spontaneous
  Country: US (occurrence: US)
  Receive Date: 20250102
  Receipt Date: 20250123
  Transmission Date: 20250409
  Serious: No
  Sender: ROCHE
  Company Number: US-ROCHE-10000169866

PATIENT
  Age: 33 Year
  Sex: Female
  Weight: 90.72 kg

DRUGS (6)
  1. XOLAIR PFS [Suspect]
     Active Substance: OMALIZUMAB
     Indication: Urticaria chronic
     Dosage: STRENGTH: 300 MG/2 ML
     Route: 058
     Dates: start: 202312
  2. XOLAIR PFS [Suspect]
     Active Substance: OMALIZUMAB
  3. HYDROXYZINE [Concomitant]
     Active Substance: HYDROXYZINE HYDROCHLORIDE
     Indication: Urticaria
     Route: 048
     Dates: start: 202311
  4. HYDROXYZINE [Concomitant]
     Active Substance: HYDROXYZINE HYDROCHLORIDE
     Indication: Pruritus
  5. GENERIC ALLEGRA [Concomitant]
     Indication: Urticaria
     Dosage: 2 OF 180MG TABLETS IN THE MORNING AND 2 OF 180MG TABLETS AT NIGHT
     Route: 048
     Dates: start: 202403
  6. ZYRTEC [Concomitant]
     Active Substance: CETIRIZINE HYDROCHLORIDE
     Indication: Seasonal allergy
     Route: 048

REACTIONS (4)
  - Syringe issue [Unknown]
  - Off label use [Unknown]
  - No adverse event [Unknown]
  - Inappropriate schedule of product administration [Unknown]

NARRATIVE: CASE EVENT DATE: 20241230
